FAERS Safety Report 8384662 (Version 4)
Quarter: 2013Q4

REPORT INFORMATION
  Report Type: Spontaneous
  Country: BR (occurrence: BR)
  Receive Date: 20120202
  Receipt Date: 20131125
  Transmission Date: 20140711
  Serious: Yes (Other)
  Sender: FDA-Public Use
  Company Number: BR-JNJFOC-20120112307

PATIENT
  Age: 80 Year
  Sex: Male
  Weight: 83 kg

DRUGS (4)
  1. HALDOL [Suspect]
     Indication: AGITATION
     Route: 048
     Dates: start: 196811
  2. HALDOL [Suspect]
     Indication: FEAR
     Route: 048
     Dates: start: 196811
  3. HALDOL [Suspect]
     Indication: PSYCHIATRIC SYMPTOM
     Route: 048
     Dates: start: 196811
  4. RAMIPRIL [Concomitant]
     Indication: BLOOD PRESSURE
     Route: 048
     Dates: start: 2002

REACTIONS (2)
  - Parkinsonism [Not Recovered/Not Resolved]
  - Off label use [Not Recovered/Not Resolved]
